FAERS Safety Report 8550686-5 (Version None)
Quarter: 2012Q3

REPORT INFORMATION
  Report Type: 
  Country: None (occurrence: None)
  Receive Date: 20120730
  Receipt Date: 20120725
  Transmission Date: 20120928
  Serious: Yes (Other)
  Sender: FDA-Public Use
  Company Number: US-GLAXOSMITHKLINE-A0977700A

PATIENT
  Age: 51 Year
  Sex: Female

DRUGS (2)
  1. VENTOLIN [Suspect]
     Indication: ASTHMA
     Dosage: 2PUFF PER DAY
     Route: 065
     Dates: start: 20120401
  2. ANTIBIOTIC [Concomitant]

REACTIONS (4)
  - PRODUCT QUALITY ISSUE [None]
  - CHOKING [None]
  - NAUSEA [None]
  - COUGH [None]
